FAERS Safety Report 7280451-0 (Version None)
Quarter: 2011Q1

REPORT INFORMATION
  Report Type: 
  Country: None (occurrence: None)
  Receive Date: 20110208
  Receipt Date: 20110128
  Transmission Date: 20110831
  Serious: Yes (Hospitalization)
  Sender: FDA-Public Use
  Company Number: NL-ROCHE-754712

PATIENT
  Sex: Female

DRUGS (1)
  1. BEVACIZUMAB [Suspect]
     Indication: OVARIAN CANCER
     Dosage: FORM: INFUSION. TEMPORARILY INTERRUPTED.
     Route: 042
     Dates: start: 20100317, end: 20110118

REACTIONS (1)
  - APPENDICITIS [None]
